FAERS Safety Report 6955230-1 (Version None)
Quarter: 2010Q3

REPORT INFORMATION
  Report Type: 
  Country: None (occurrence: None)
  Receive Date: 20100830
  Receipt Date: 20100816
  Transmission Date: 20110219
  Serious: Yes (Life-Threatening, Hospitalization, Other)
  Sender: FDA-Public Use
  Company Number: US-ELI_LILLY_AND_COMPANY-US201008004981

PATIENT
  Age: 54 Year
  Sex: Female
  Weight: 54.422 kg

DRUGS (7)
  1. ZYPREXA [Suspect]
  2. GEODON [Concomitant]
     Indication: BIPOLAR DISORDER
     Dosage: 1 D/F, UNK
     Route: 048
     Dates: start: 20011021, end: 20011224
  3. CELEXA [Concomitant]
     Dosage: 20 MG, EACH MORNING
  4. DEPAKOTE [Concomitant]
     Dosage: 500 MG, DAILY (1/D)
  5. DEPAKOTE [Concomitant]
     Dosage: 750 MG, DAILY (1/D)
  6. COGENTIN [Concomitant]
     Dosage: 2 MG, 2/D
  7. COGENTIN [Concomitant]
     Dosage: 2 MG, DAILY (1/D)

REACTIONS (33)
  - ACIDOSIS [None]
  - ACUTE RESPIRATORY FAILURE [None]
  - AGGRESSION [None]
  - AMNESIA [None]
  - ARRHYTHMIA [None]
  - BLOOD CREATINE PHOSPHOKINASE INCREASED [None]
  - BLOOD CREATINE PHOSPHOKINASE MB INCREASED [None]
  - BRAIN INJURY [None]
  - CARDIAC ARREST [None]
  - COGNITIVE DISORDER [None]
  - COMA [None]
  - DYSPHAGIA [None]
  - FEELING ABNORMAL [None]
  - FLASHBACK [None]
  - FLAT AFFECT [None]
  - HYPOXIA [None]
  - HYPOXIC-ISCHAEMIC ENCEPHALOPATHY [None]
  - INSOMNIA [None]
  - LACK OF SPONTANEOUS SPEECH [None]
  - LONG QT SYNDROME [None]
  - LOSS OF CONSCIOUSNESS [None]
  - MEMORY IMPAIRMENT [None]
  - MOOD SWINGS [None]
  - MYOGLOBIN BLOOD INCREASED [None]
  - NERVOUSNESS [None]
  - NIGHTMARE [None]
  - PNEUMONIA [None]
  - RESPIRATORY ARREST [None]
  - RHABDOMYOLYSIS [None]
  - SINUS BRADYCARDIA [None]
  - STAPHYLOCOCCAL BACTERAEMIA [None]
  - STARING [None]
  - WEIGHT INCREASED [None]
